FAERS Safety Report 26153557 (Version 1)
Quarter: 2025Q4

REPORT INFORMATION
  Report Type: Spontaneous
  Country: JP (occurrence: JP)
  Receive Date: 20251214
  Receipt Date: 20251214
  Transmission Date: 20260117
  Serious: Yes (Other)
  Sender: EISAI
  Company Number: JP-Eisai-202511868_LEN-EC_P_1

PATIENT
  Age: 76 Year
  Sex: Female

DRUGS (2)
  1. LENVATINIB [Suspect]
     Active Substance: LENVATINIB
     Indication: Endometrial cancer
     Route: 048
  2. PEMBROLIZUMAB [Concomitant]
     Active Substance: PEMBROLIZUMAB
     Indication: Endometrial cancer
     Dosage: DOSE AND FREQUENCY WERE UNKNOWN
     Route: 041

REACTIONS (5)
  - Adrenal insufficiency [Unknown]
  - Hypertension [Unknown]
  - Platelet count decreased [Unknown]
  - Malaise [Unknown]
  - Hypothyroidism [Unknown]
